FAERS Safety Report 13768339 (Version 1)
Quarter: 2017Q3

REPORT INFORMATION
  Report Type: Spontaneous
  Country: ZA (occurrence: ZA)
  Receive Date: 20170719
  Receipt Date: 20170719
  Transmission Date: 20171127
  Serious: Yes (Other)
  Sender: FDA-Public Use
  Company Number: ZA-DRREDDYS-SAF/SAF/17/0092031

PATIENT
  Age: 46 Year
  Sex: Female

DRUGS (1)
  1. LAMITOR 200 [Suspect]
     Active Substance: LAMOTRIGINE
     Indication: EPILEPSY
     Dosage: 400 MG AT NIGHT.
     Route: 048
     Dates: start: 20170110, end: 201705

REACTIONS (3)
  - Condition aggravated [Recovered/Resolved]
  - Product substitution issue [Recovered/Resolved]
  - Epilepsy [Recovered/Resolved]
